FAERS Safety Report 6203219-2 (Version None)
Quarter: 2009Q2

REPORT INFORMATION
  Report Type: 
  Country: None (occurrence: None)
  Receive Date: 20090522
  Receipt Date: 20090522
  Transmission Date: 20091009
  Serious: Yes (Life-Threatening, Hospitalization)
  Sender: FDA-Public Use
  Company Number: None

PATIENT
  Age: 61 Year
  Sex: Male
  Weight: 81.6 kg

DRUGS (2)
  1. METHADONE [Suspect]
     Indication: PAIN
     Dosage: 40 MG TID PO
     Route: 048
     Dates: start: 20090519, end: 20090520
  2. HYDROMORPHONE [Suspect]
     Indication: PAIN
     Dosage: 2 MG OTHER PO
     Route: 048
     Dates: start: 20090519, end: 20090520

REACTIONS (3)
  - CARDIO-RESPIRATORY ARREST [None]
  - RESPIRATORY DEPRESSION [None]
  - SEDATION [None]
